FAERS Safety Report 15372341 (Version 2)
Quarter: 2018Q4

REPORT INFORMATION
  Report Type: Spontaneous
  Country: US (occurrence: US)
  Receive Date: 20180911
  Receipt Date: 20181011
  Transmission Date: 20190204
  Serious: Yes (Disabling)
  Sender: FDA-Public Use
  Company Number: US-CELGENEUS-USA-20180810310

PATIENT
  Age: 62 Year
  Sex: Female

DRUGS (5)
  1. THALOMID [Suspect]
     Active Substance: THALIDOMIDE
     Dosage: 50 MILLIGRAM
     Route: 048
     Dates: start: 20130313
  2. THALOMID [Suspect]
     Active Substance: THALIDOMIDE
     Dosage: 100MG-50MG
     Route: 048
     Dates: start: 200711
  3. THALOMID [Suspect]
     Active Substance: THALIDOMIDE
     Dosage: 150MG-200MG
     Route: 048
     Dates: start: 200609
  4. THALOMID [Suspect]
     Active Substance: THALIDOMIDE
     Indication: PLASMA CELL MYELOMA IN REMISSION
     Dosage: 200 MILLIGRAM
     Route: 048
     Dates: start: 200608
  5. THALOMID [Suspect]
     Active Substance: THALIDOMIDE
     Dosage: 50 MILLIGRAM
     Route: 048
     Dates: start: 200611

REACTIONS (1)
  - Hereditary non-polyposis colorectal cancer syndrome [Not Recovered/Not Resolved]

NARRATIVE: CASE EVENT DATE: 201712
